FAERS Safety Report 25382573 (Version 1)
Quarter: 2025Q2

REPORT INFORMATION
  Report Type: Spontaneous
  Country: US (occurrence: US)
  Receive Date: 20250601
  Receipt Date: 20250601
  Transmission Date: 20250716
  Serious: No
  Sender: AMGEN
  Company Number: US-AMGEN-USASP2025105547

PATIENT
  Age: 66 Year

DRUGS (2)
  1. REPATHA [Suspect]
     Active Substance: EVOLOCUMAB
     Indication: Blood cholesterol abnormal
     Dosage: 140 MILLIGRAM, Q2WK
     Route: 065
     Dates: start: 20250122
  2. REPATHA [Suspect]
     Active Substance: EVOLOCUMAB
     Route: 065

REACTIONS (6)
  - Device difficult to use [Unknown]
  - Wrong technique in product usage process [Unknown]
  - Feeling abnormal [Unknown]
  - Product use issue [Unknown]
  - Drug dose omission by device [Unknown]
  - Product preparation error [Unknown]

NARRATIVE: CASE EVENT DATE: 20250527
